FAERS Safety Report 6869442-9 (Version None)
Quarter: 2010Q3

REPORT INFORMATION
  Report Type: 
  Country: None (occurrence: None)
  Receive Date: 20100722
  Receipt Date: 20100722
  Transmission Date: 20110219
  Serious: Yes (Hospitalization)
  Sender: FDA-Public Use
  Company Number: None

PATIENT
  Sex: Male
  Weight: 84.5 kg

DRUGS (4)
  1. SEROQUEL [Suspect]
     Indication: ANXIETY
     Dosage: 300 MG QD PO
     Route: 048
     Dates: start: 20100510
  2. SEROQUEL [Suspect]
     Indication: BIPOLAR DISORDER
     Dosage: 300 MG QD PO
     Route: 048
     Dates: start: 20100510
  3. SEROQUEL [Suspect]
     Indication: ANXIETY
     Dosage: 300 MG QD PO
     Route: 048
     Dates: start: 20100714
  4. SEROQUEL [Suspect]
     Indication: BIPOLAR DISORDER
     Dosage: 300 MG QD PO
     Route: 048
     Dates: start: 20100714

REACTIONS (2)
  - ALCOHOL USE [None]
  - LOSS OF CONSCIOUSNESS [None]
